FAERS Safety Report 23248198 (Version 1)
Quarter: 2023Q4

REPORT INFORMATION
  Report Type: Report from Study
  Country: JP (occurrence: JP)
  Receive Date: 20231130
  Receipt Date: 20231130
  Transmission Date: 20240110
  Serious: Yes (Other)
  Sender: FDA-Public Use
  Company Number: JP-TAKEDA-2023TJP015422

PATIENT
  Age: 79 Year
  Sex: Female

DRUGS (1)
  1. PANITUMUMAB [Suspect]
     Active Substance: PANITUMUMAB
     Indication: Colon cancer recurrent
     Dosage: UNK
     Route: 065
     Dates: start: 20170516, end: 20170822

REACTIONS (10)
  - Subcutaneous haematoma [Unknown]
  - Blood creatinine increased [Unknown]
  - Skin disorder [Unknown]
  - Hypomagnesaemia [Unknown]
  - Dermatitis acneiform [Unknown]
  - Device related infection [Unknown]
  - Blood creatinine increased [Unknown]
  - Hypertension [Unknown]
  - Anaemia [Unknown]
  - Hypocalcaemia [Unknown]
